FAERS Safety Report 8420116-2 (Version None)
Quarter: 2012Q2

REPORT INFORMATION
  Report Type: 
  Country: None (occurrence: None)
  Receive Date: 20120607
  Receipt Date: 20120531
  Transmission Date: 20120825
  Serious: Yes (Hospitalization)
  Sender: FDA-Public Use
  Company Number: ES-JNJFOC-20120400827

PATIENT
  Sex: Male
  Weight: 84.7 kg

DRUGS (5)
  1. TRANXILIUM [Concomitant]
     Indication: ANXIETY
     Route: 065
     Dates: start: 20120206
  2. PALIPERIDONE [Suspect]
     Indication: SCHIZOPHRENIA
     Route: 030
     Dates: start: 20120209
  3. METFORMIN HCL [Concomitant]
     Indication: DIABETES MELLITUS
     Route: 065
     Dates: start: 20110101
  4. ZYPREXA [Concomitant]
     Indication: PSYCHOTIC DISORDER
     Dates: start: 20120308
  5. LORMETAZEPAM [Concomitant]
     Indication: INSOMNIA
     Route: 065
     Dates: start: 20120308

REACTIONS (1)
  - PSYCHOTIC DISORDER [None]
